FAERS Safety Report 6865470-8 (Version None)
Quarter: 2010Q3

REPORT INFORMATION
  Report Type: 
  Country: None (occurrence: None)
  Receive Date: 20100721
  Receipt Date: 20080613
  Transmission Date: 20110219
  Serious: Yes (Other)
  Sender: FDA-Public Use
  Company Number: US-PFIZER INC-2008036325

PATIENT
  Sex: Male
  Weight: 102.1 kg

DRUGS (9)
  1. CHANTIX [Suspect]
     Indication: SMOKING CESSATION THERAPY
     Route: 048
     Dates: start: 20080418, end: 20080419
  2. PLAVIX [Concomitant]
  3. LANTUS [Concomitant]
     Indication: DIABETES MELLITUS
  4. FUROSEMIDE [Concomitant]
  5. AMLODIPINE [Concomitant]
     Indication: BLOOD PRESSURE
  6. ACETYLSALICYLIC ACID [Concomitant]
  7. CRESTOR [Concomitant]
     Indication: BLOOD CHOLESTEROL
  8. ADVAIR DISKUS 100/50 [Concomitant]
  9. PRINIVIL [Concomitant]

REACTIONS (3)
  - CHEST PAIN [None]
  - DIZZINESS [None]
  - URTICARIA [None]
